FAERS Safety Report 21738867 (Version 3)
Quarter: 2023Q2

REPORT INFORMATION
  Report Type: Report from Study
  Country: BR (occurrence: BR)
  Receive Date: 20221216
  Receipt Date: 20230417
  Transmission Date: 20230721
  Serious: Yes (Other)
  Sender: FDA-Public Use
  Company Number: BR-BoehringerIngelheim-2022-BI-207487

PATIENT
  Age: 77 Year
  Sex: Male
  Weight: 75 kg

DRUGS (8)
  1. OLODATEROL HYDROCHLORIDE\TIOTROPIUM BROMIDE MONOHYDRATE [Suspect]
     Active Substance: OLODATEROL HYDROCHLORIDE\TIOTROPIUM BROMIDE MONOHYDRATE
     Indication: Dyspnoea
     Dosage: AEROSOL, 2.5 MCG + 2.5 MCG, 2 PUFFS ONCE DAILY IN THE MORNING
     Route: 055
     Dates: start: 20221029
  2. OLODATEROL HYDROCHLORIDE\TIOTROPIUM BROMIDE MONOHYDRATE [Suspect]
     Active Substance: OLODATEROL HYDROCHLORIDE\TIOTROPIUM BROMIDE MONOHYDRATE
     Indication: Lung disorder
     Dosage: 2 PUFFS ONCE A DAY
     Dates: start: 2022, end: 202303
  3. OLODATEROL HYDROCHLORIDE\TIOTROPIUM BROMIDE MONOHYDRATE [Suspect]
     Active Substance: OLODATEROL HYDROCHLORIDE\TIOTROPIUM BROMIDE MONOHYDRATE
     Indication: Dyspnoea
  4. OLODATEROL HYDROCHLORIDE\TIOTROPIUM BROMIDE MONOHYDRATE [Suspect]
     Active Substance: OLODATEROL HYDROCHLORIDE\TIOTROPIUM BROMIDE MONOHYDRATE
     Indication: Respiratory muscle weakness
  5. SPIRIVA RESPIMAT [Suspect]
     Active Substance: TIOTROPIUM BROMIDE
     Indication: Chronic obstructive pulmonary disease
     Dosage: AEROSOL, 2 CONSECUTIVE PUFFS ONCE DAILY, IN THE MORNING
     Route: 055
     Dates: end: 20221028
  6. SPIRIVA RESPIMAT [Suspect]
     Active Substance: TIOTROPIUM BROMIDE
     Indication: Pulmonary oedema
  7. HYDROCHLOROTHIAZIDE\LOSARTAN POTASSIUM [Concomitant]
     Active Substance: HYDROCHLOROTHIAZIDE\LOSARTAN POTASSIUM
     Indication: Hypertension
     Dosage: 50 MG/12.5, 1 TABLET IN THE MORNING EVERY OTHER DAY
     Route: 048
  8. Alenia [Concomitant]
     Indication: Dyspnoea
     Dosage: INHALATION CAPSULES, 12MCG/400MCG, 1 INHALATION IN THE MORNING AND 1 INHALATION AT NIGHT
     Route: 055
     Dates: end: 20221029

REACTIONS (19)
  - Prostate cancer [Recovered/Resolved]
  - Adjustment disorder [Unknown]
  - Depression [Unknown]
  - Insomnia [Not Recovered/Not Resolved]
  - Irritability [Not Recovered/Not Resolved]
  - Back pain [Recovered/Resolved]
  - Pain [Unknown]
  - Asthenia [Unknown]
  - Dizziness [Not Recovered/Not Resolved]
  - Headache [Not Recovered/Not Resolved]
  - Arthralgia [Not Recovered/Not Resolved]
  - Eye pain [Not Recovered/Not Resolved]
  - Dysphonia [Recovered/Resolved]
  - Headache [Not Recovered/Not Resolved]
  - Bone pain [Not Recovered/Not Resolved]
  - Vision blurred [Not Recovered/Not Resolved]
  - Decreased activity [Unknown]
  - Drug ineffective [Unknown]
  - Drug ineffective [Unknown]

NARRATIVE: CASE EVENT DATE: 20110101
